FAERS Safety Report 7638466-6 (Version None)
Quarter: 2011Q3

REPORT INFORMATION
  Report Type: 
  Country: None (occurrence: None)
  Receive Date: 20110720
  Receipt Date: 20110705
  Transmission Date: 20111222
  Serious: Yes (Hospitalization)
  Sender: FDA-Public Use
  Company Number: 2011MA008666

PATIENT
  Age: 93 Year
  Sex: Female

DRUGS (12)
  1. TOILAX [Concomitant]
  2. FUCIDINE CAP [Concomitant]
  3. POTASSIUM CHLORIDE [Concomitant]
  4. MORPHINE SULFATE [Suspect]
     Indication: PAIN
  5. INTERTULLE [Concomitant]
  6. FUROSEMIDE [Concomitant]
  7. GLIMEPIRIDE [Concomitant]
  8. METFORMIN HYDROCHLORIDE [Suspect]
     Indication: DIABETES MELLITUS
     Dosage: 500 MG;BID;PO
     Route: 048
     Dates: start: 20110601
  9. PERILAX [Concomitant]
  10. SIMVASTATIN [Concomitant]
  11. ASPIRIN [Concomitant]
  12. AMARYL [Concomitant]

REACTIONS (4)
  - NAUSEA [None]
  - METABOLIC ACIDOSIS [None]
  - ABDOMINAL PAIN [None]
  - VOMITING [None]
